FAERS Safety Report 18703557 (Version 2)
Quarter: 2021Q1

REPORT INFORMATION
  Report Type: Spontaneous
  Country: ES (occurrence: ES)
  Receive Date: 20210105
  Receipt Date: 20210305
  Transmission Date: 20210419
  Serious: Yes (Other)
  Sender: FDA-Public Use
  Company Number: ES-TEVA-2020-ES-1864372

PATIENT
  Age: 68 Year
  Sex: Female

DRUGS (5)
  1. AMLODIPINO (2503A) [Suspect]
     Active Substance: AMLODIPINE BESYLATE
     Indication: HYPERTENSION
     Route: 048
     Dates: start: 20201103, end: 20201207
  2. SIMVASTATINA (1023A) [Concomitant]
     Active Substance: SIMVASTATIN
     Route: 048
     Dates: start: 20120217
  3. PROLIA 60 MG SOLUCION INYECTABLE EN JERINGA PRECARGADA , 1 JERINGA PRE [Concomitant]
     Route: 058
     Dates: start: 20200224
  4. CALODIS 1000 MG/880 UI COMPRIMIDOS EFERVESCENTES, 30 COMPRIMIDOS [Concomitant]
     Route: 048
     Dates: start: 20190430
  5. ADIRO 100 MG COMPRIMIDOS GASTRORRESISTENTES EFG , 60 COMPRIMIDOS [Concomitant]
     Active Substance: ASPIRIN
     Route: 048
     Dates: start: 20180803

REACTIONS (3)
  - Skin exfoliation [Recovering/Resolving]
  - Pruritus [Recovering/Resolving]
  - Hand dermatitis [Recovering/Resolving]

NARRATIVE: CASE EVENT DATE: 20201130
